FAERS Safety Report 8846623 (Version 1)
Quarter: 2012Q4

REPORT INFORMATION
  Report Type: 
  Country: US (occurrence: US)
  Receive Date: 20121017
  Receipt Date: 20121017
  Transmission Date: 20130627
  Serious: No
  Sender: FDA-Public Use
  Company Number: US-ASTRAZENECA-2012SE75428

PATIENT
  Age: 58 Year
  Sex: Female

DRUGS (10)
  1. TENORMIN [Suspect]
     Route: 048
  2. ZESTRIL [Suspect]
     Route: 048
  3. INDOCIN [Concomitant]
  4. ESTRADIOL [Concomitant]
  5. ZETIA [Concomitant]
  6. LORATADINE [Concomitant]
  7. MULTIVITAMIN [Concomitant]
  8. ASPIRIN [Concomitant]
  9. OMEGA-3 [Concomitant]
  10. CALCIUM D [Concomitant]

REACTIONS (2)
  - Osteoarthritis [Unknown]
  - Osteoarthritis [Unknown]
